FAERS Safety Report 9333921 (Version 2)
Quarter: 2013Q4

REPORT INFORMATION
  Report Type: Spontaneous
  Country: US (occurrence: US)
  Receive Date: 20130606
  Receipt Date: 20131008
  Transmission Date: 20140711
  Serious: No
  Sender: FDA-Public Use
  Company Number: US-AMGEN-USASP2013015374

PATIENT
  Age: 87 Year
  Sex: Female

DRUGS (1)
  1. PROLIA [Suspect]
     Indication: OSTEOPOROSIS
     Dosage: UNK
     Dates: start: 20120917

REACTIONS (5)
  - Tooth disorder [Unknown]
  - Toothache [Not Recovered/Not Resolved]
  - Arthropathy [Unknown]
  - Nail discolouration [Unknown]
  - Pain in extremity [Recovered/Resolved]
